FAERS Safety Report 7296282-1 (Version None)
Quarter: 2011Q1

REPORT INFORMATION
  Report Type: 
  Country: None (occurrence: None)
  Receive Date: 20110211
  Receipt Date: 20110211
  Transmission Date: 20110831
  Serious: Yes (Other)
  Sender: FDA-Public Use
  Company Number: None

PATIENT
  Age: 30 Year
  Sex: Male
  Weight: 122.4712 kg

DRUGS (1)
  1. ZYRTEC [Suspect]
     Indication: MULTIPLE ALLERGIES
     Dosage: 1 PILL DAILY PO
     Route: 048
     Dates: start: 20040825, end: 20110207

REACTIONS (13)
  - ANXIETY [None]
  - ANGER [None]
  - FATIGUE [None]
  - NIGHTMARE [None]
  - INSOMNIA [None]
  - PARANOIA [None]
  - MOOD ALTERED [None]
  - DEPRESSION [None]
  - INCREASED APPETITE [None]
  - IRRITABILITY [None]
  - DISTURBANCE IN ATTENTION [None]
  - WEIGHT INCREASED [None]
  - PERSONALITY CHANGE [None]
